FAERS Safety Report 15470433 (Version 2)
Quarter: 2019Q3

REPORT INFORMATION
  Report Type: Spontaneous
  Country: US (occurrence: US)
  Receive Date: 20181005
  Receipt Date: 20190809
  Transmission Date: 20191004
  Serious: No
  Sender: FDA-Public Use
  Company Number: US-SA-2018SA274058

PATIENT
  Age: 65 Year
  Sex: Male
  Weight: 81.6 kg

DRUGS (5)
  1. FISH OIL [Concomitant]
     Active Substance: FISH OIL
  2. MILK THISTLE [SILYBUM MARIANUM] [Concomitant]
     Active Substance: DIETARY SUPPLEMENT\HERBALS\MILK THISTLE
  3. MULTIVITAMINS [VITAMINS NOS] [Concomitant]
     Active Substance: VITAMINS
  4. LIDOCAINE. [Concomitant]
     Active Substance: LIDOCAINE
  5. DUPIXENT [Suspect]
     Active Substance: DUPILUMAB
     Indication: DERMATITIS ATOPIC
     Dosage: 300 MG, QOW/UNDER THE SKIN
     Dates: start: 20180822

REACTIONS (2)
  - Eczema [Recovered/Resolved]
  - Rash [Unknown]

NARRATIVE: CASE EVENT DATE: 201809
